FAERS Safety Report 7701244-3 (Version None)
Quarter: 2011Q3

REPORT INFORMATION
  Report Type: 
  Country: None (occurrence: None)
  Receive Date: 20110822
  Receipt Date: 20110819
  Transmission Date: 20111222
  Serious: Yes (Other)
  Sender: FDA-Public Use
  Company Number: CA-GLAXOSMITHKLINE-A0941565A

PATIENT
  Sex: Female
  Weight: 72.7 kg

DRUGS (1)
  1. ADVAIR DISKUS 100/50 [Suspect]
     Indication: ASTHMA
     Dosage: 1PUFF TWICE PER DAY
     Route: 055
     Dates: start: 20110818, end: 20110819

REACTIONS (5)
  - DYSPNOEA [None]
  - APHAGIA [None]
  - INSOMNIA [None]
  - DYSPNOEA AT REST [None]
  - NOCTURNAL DYSPNOEA [None]
